FAERS Safety Report 15879332 (Version 13)
Quarter: 2020Q3

REPORT INFORMATION
  Report Type: Spontaneous
  Country: US (occurrence: US)
  Receive Date: 20190128
  Receipt Date: 20200917
  Transmission Date: 20201102
  Serious: No
  Sender: FDA-Public Use
  Company Number: US-PFIZER INC-2019036520

PATIENT
  Age: 54 Year
  Sex: Female

DRUGS (2)
  1. FLECTOR [Suspect]
     Active Substance: DICLOFENAC EPOLAMINE
     Dosage: 5 DF, 2X/DAY (5 PATCHES TO AFFECTED AREA EVERY 12 HOURS)
     Route: 061
  2. FLECTOR [Suspect]
     Active Substance: DICLOFENAC EPOLAMINE
     Indication: PAIN
     Dosage: 2 DF, AS NEEDED [2 PATCH QD (ONE A DAY) PRN (AS NEEDED)]
     Route: 061

REACTIONS (9)
  - Attention deficit hyperactivity disorder [Unknown]
  - Neck pain [Unknown]
  - Viral infection [Unknown]
  - Product dose omission issue [Unknown]
  - Wrong technique in product usage process [Unknown]
  - Anxiety [Unknown]
  - Malaise [Unknown]
  - Back pain [Unknown]
  - Peripheral swelling [Unknown]
